FAERS Safety Report 4371244-2 (Version None)
Quarter: 2004Q2

REPORT INFORMATION
  Report Type: 
  Country: None (occurrence: None)
  Receive Date: 20040603
  Receipt Date: 20040518
  Transmission Date: 20050107
  Serious: Yes (Hospitalization)
  Sender: FDA-Public Use
  Company Number: GB-JNJFOC-20040503857

PATIENT
  Age: 71 Year
  Sex: Female

DRUGS (6)
  1. REMICADE [Suspect]
     Indication: RHEUMATOID ARTHRITIS
     Dosage: 180 MG; 200 MG
     Dates: start: 20020919
  2. METHOTREXATE [Concomitant]
  3. VIOXX [Concomitant]
  4. CO-PROXAMOL (APOREX) UNKNOWN [Concomitant]
  5. WARFARIN SODIUM [Concomitant]
  6. NIFEDIPINE (NIFEDIPINE) UNKNOWN [Concomitant]

REACTIONS (1)
  - HIP FRACTURE [None]
